FAERS Safety Report 8692181 (Version 3)
Quarter: 2012Q4

REPORT INFORMATION
  Report Type: 
  Country: US (occurrence: US)
  Receive Date: 20120730
  Receipt Date: 20121220
  Transmission Date: 20130627
  Serious: Yes (Hospitalization, Disabling, Other)
  Sender: FDA-Public Use
  Company Number: US-CELGENEUS-163-21880-12072810

PATIENT
  Sex: Female

DRUGS (9)
  1. REVLIMID [Suspect]
     Indication: MULTIPLE MYELOMA
     Dosage: 5 Milligram
     Route: 048
     Dates: start: 200703
  2. REVLIMID [Suspect]
     Dosage: 5 Milligram
     Route: 048
     Dates: start: 201103
  3. REVLIMID [Suspect]
     Dosage: 5 Milligram
     Route: 048
     Dates: start: 201112
  4. REVLIMID [Suspect]
     Dosage: 5 Milligram
     Route: 048
     Dates: start: 201204
  5. COUMADIN [Concomitant]
     Indication: THROMBOSIS PROPHYLAXIS
     Dosage: 6 Milligram
     Route: 048
     Dates: start: 2007
  6. ASA [Concomitant]
     Indication: THROMBOSIS PROPHYLAXIS
     Dosage: 81 Milligram
     Route: 048
     Dates: start: 2007
  7. ENALAPRIL [Concomitant]
     Indication: HYPERTENSION
     Dosage: 10 Milligram
     Route: 048
     Dates: start: 2006
  8. METFORMIN [Concomitant]
     Indication: DIABETES
     Dosage: 2000 Milligram
     Route: 048
     Dates: start: 2006
  9. GLIPIZIDE [Concomitant]
     Indication: DIABETES
     Dosage: 5 Milligram
     Route: 048
     Dates: start: 2006

REACTIONS (2)
  - Limb injury [Recovered/Resolved]
  - Diabetes mellitus [Unknown]
